FAERS Safety Report 9055503 (Version 1)
Quarter: 2013Q1

REPORT INFORMATION
  Report Type: Spontaneous
  Country: US (occurrence: US)
  Receive Date: 20130206
  Receipt Date: 20130206
  Transmission Date: 20140127
  Serious: Yes (Hospitalization)
  Sender: FDA-Public Use
  Company Number: US-GLAXOSMITHKLINE-A0898273A

PATIENT
  Age: 56 Year
  Sex: Female

DRUGS (2)
  1. AVANDIA [Suspect]
     Indication: TYPE 2 DIABETES MELLITUS
     Route: 048
  2. AVANDARYL [Suspect]
     Indication: DIABETES MELLITUS
     Dosage: 1TABS PER DAY
     Route: 048

REACTIONS (4)
  - Cerebrovascular accident [Unknown]
  - Coronary artery disease [Unknown]
  - Generalised anxiety disorder [Unknown]
  - Cardiac disorder [Unknown]
